FAERS Safety Report 9244772 (Version 1)
Quarter: 2013Q2

REPORT INFORMATION
  Report Type: Spontaneous
  Country: US (occurrence: US)
  Receive Date: 20130422
  Receipt Date: 20130422
  Transmission Date: 20140414
  Serious: No
  Sender: FDA-Public Use
  Company Number: US-JNJFOC-20130316208

PATIENT
  Sex: 0

DRUGS (4)
  1. PALIPERIDONE PALMITATE [Suspect]
     Indication: SCHIZOAFFECTIVE DISORDER
     Route: 030
  2. PALIPERIDONE PALMITATE [Suspect]
     Indication: SCHIZOAFFECTIVE DISORDER
     Route: 030
  3. PALIPERIDONE PALMITATE [Suspect]
     Indication: SCHIZOAFFECTIVE DISORDER
     Route: 030
  4. PALIPERIDONE PALMITATE [Suspect]
     Indication: SCHIZOAFFECTIVE DISORDER
     Route: 030

REACTIONS (2)
  - Drug effect decreased [Unknown]
  - Inappropriate schedule of drug administration [Unknown]
